FAERS Safety Report 19484648 (Version 1)
Quarter: 2021Q3

REPORT INFORMATION
  Report Type: Spontaneous
  Country: US (occurrence: US)
  Receive Date: 20210702
  Receipt Date: 20210702
  Transmission Date: 20211014
  Serious: No
  Sender: FDA-Public Use
  Company Number: US-DRREDDYS-SPO/USA/21/0136988

PATIENT
  Age: 14 Year
  Sex: Male

DRUGS (1)
  1. ZENATANE [Suspect]
     Active Substance: ISOTRETINOIN
     Indication: PRODUCT USED FOR UNKNOWN INDICATION
     Dosage: RMA ISSUE DATE: 17 FEBRUARY 2021  5:37:28 PM, 12 MARCH 2021 5:45:26 PM

REACTIONS (1)
  - Therapy cessation [Unknown]
